FAERS Safety Report 4940046-8 (Version None)
Quarter: 2006Q1

REPORT INFORMATION
  Report Type: 
  Country: None (occurrence: None)
  Receive Date: 20060310
  Receipt Date: 20060227
  Transmission Date: 20060701
  Serious: Yes (Other)
  Sender: FDA-Public Use
  Company Number: 2006AP00946

PATIENT
  Age: 25248 Day
  Sex: Female

DRUGS (1)
  1. TAMOXIFEN CITRATE [Suspect]
     Indication: BREAST CANCER IN SITU
     Route: 048
     Dates: start: 20060127

REACTIONS (2)
  - EYE IRRITATION [None]
  - EYE PRURITUS [None]
